FAERS Safety Report 8510301 (Version 13)
Quarter: 2013Q2

REPORT INFORMATION
  Report Type: Spontaneous
  Country: AT (occurrence: AT)
  Receive Date: 20120413
  Receipt Date: 20130419
  Transmission Date: 20140414
  Serious: Yes (Other)
  Sender: FDA-Public Use
  Company Number: AT-JNJFOC-20120207303

PATIENT
  Sex: Male
  Weight: 82 kg

DRUGS (4)
  1. ZYTIGA [Suspect]
     Indication: PROSTATE CANCER
     Dosage: 250 MG TABLETS, TAKEN 40 MINUTES AFTER PREDNISOLONE
  2. ZYTIGA [Suspect]
     Indication: PROSTATE CANCER
     Dosage: 4-0-0 (IN 5 MIN INTERVALS)
  3. APREDNISLON [Suspect]
     Indication: PROSTATE CANCER
     Dosage: 1-1-0
     Route: 065
  4. APREDNISLON [Suspect]
     Indication: PROSTATE CANCER
     Route: 065

REACTIONS (25)
  - Bone atrophy [Unknown]
  - Prostatic specific antigen increased [Unknown]
  - Atrial fibrillation [Not Recovered/Not Resolved]
  - Nerve root injury [Not Recovered/Not Resolved]
  - Surgery [Unknown]
  - Lymphoma [Unknown]
  - Arrhythmia [Not Recovered/Not Resolved]
  - Dyspnoea [Unknown]
  - Oedema [Unknown]
  - Penile oedema [Recovered/Resolved]
  - Body fat disorder [Unknown]
  - Oedema peripheral [Unknown]
  - Weight decreased [Unknown]
  - Muscle atrophy [Unknown]
  - Decreased appetite [Unknown]
  - Irritability [Unknown]
  - Intracranial pressure increased [Unknown]
  - Constipation [Unknown]
  - Sleep disorder [Recovering/Resolving]
  - Dry skin [Unknown]
  - Nail disorder [Unknown]
  - Pruritus [Unknown]
  - Faeces hard [Unknown]
  - Hyperacusis [Unknown]
  - Tinnitus [Unknown]
